FAERS Safety Report 18203365 (Version 7)
Quarter: 2021Q4

REPORT INFORMATION
  Report Type: Report from Study
  Country: GB (occurrence: GB)
  Receive Date: 20200827
  Receipt Date: 20211117
  Transmission Date: 20220303
  Serious: Yes (Death, Hospitalization, Other)
  Sender: FDA-Public Use
  Company Number: GB-ROCHE-1675688

PATIENT
  Age: 59 Year
  Sex: Female

DRUGS (21)
  1. PACLITAXEL [Suspect]
     Active Substance: PACLITAXEL
     Indication: Breast cancer metastatic
     Dosage: 150 MILLIGRAM, QW ( (CUMULATIVE DOSE TO FIRST REACTION: 428.57144 MG)   )
     Route: 042
     Dates: start: 20151111, end: 20151222
  2. PACLITAXEL [Suspect]
     Active Substance: PACLITAXEL
     Dosage: 120 MILLIGRAM, QW ((CUMULATIVE DOSE TO FIRST REACTION: 377.14285 MG)
     Route: 042
     Dates: start: 20151223, end: 20151223
  3. TRASTUZUMAB [Suspect]
     Active Substance: TRASTUZUMAB
     Indication: Breast cancer metastatic
     Dosage: 609 MILLIGRAM, Q3W (LOADING DOSE: 8 MG/KG)
     Route: 042
     Dates: start: 20150930, end: 20150930
  4. TRASTUZUMAB [Suspect]
     Active Substance: TRASTUZUMAB
     Dosage: 441 MILLIGRAM, Q3W (MAINTAINANCE DOSE: 6 MG/KG)
     Route: 042
     Dates: start: 20151021
  5. DOCETAXEL [Suspect]
     Active Substance: DOCETAXEL
     Indication: Breast cancer metastatic
     Dosage: 110 MILLIGRAM, Q3W (NUMBER OF CYCLE PER REGIMEN 2)
     Route: 042
     Dates: start: 20150930, end: 20151021
  6. PERTUZUMAB [Suspect]
     Active Substance: PERTUZUMAB
     Indication: Breast cancer metastatic
     Dosage: 840 MILLIGRAM, Q3W  (LOADING DOSE)
     Route: 042
     Dates: start: 20150930, end: 20150930
  7. PERTUZUMAB [Suspect]
     Active Substance: PERTUZUMAB
     Dosage: 420 MILLIGRAM, Q3W  (MAINTAINANCE DOSE)
     Route: 042
     Dates: start: 20151021
  8. PREGABALIN [Concomitant]
     Active Substance: PREGABALIN
     Dosage: 75 MILLIGRAM, BID
     Route: 048
     Dates: start: 201509
  9. PIPERACILLIN SODIUM\TAZOBACTAM SODIUM [Concomitant]
     Active Substance: PIPERACILLIN SODIUM\TAZOBACTAM SODIUM
     Indication: Febrile neutropenia
     Dosage: UNK
     Route: 042
     Dates: start: 20151121, end: 201511
  10. ACETAMINOPHEN [Concomitant]
     Active Substance: ACETAMINOPHEN
     Indication: Pain
     Dosage: 500 MILLIGRAM
     Route: 048
     Dates: start: 20160127
  11. MORPHINE SULFATE [Concomitant]
     Active Substance: MORPHINE SULFATE
     Dosage: 10 MILLIGRAM
     Route: 048
     Dates: start: 201509
  12. DENOSUMAB [Concomitant]
     Active Substance: DENOSUMAB
     Indication: Metastases to bone
     Dosage: 120 MILLIGRAM, 9 WEEK ((CUMULATIVE DOSE TO FIRST REACTION: 118.17461 MG)  )
     Route: 058
     Dates: start: 20150930
  13. GENTAMICIN [Concomitant]
     Active Substance: GENTAMICIN
     Indication: Febrile neutropenia
     Dosage: UNK
     Route: 042
     Dates: start: 20151121, end: 201511
  14. MIRTAZAPINE [Concomitant]
     Active Substance: MIRTAZAPINE
     Dosage: 15 MILLIGRAM, QD
     Route: 048
     Dates: start: 201510
  15. CALCIUM\CHOLECALCIFEROL [Concomitant]
     Active Substance: CALCIUM\CHOLECALCIFEROL
     Dosage: 2 DOSAGE FORM, QD
     Route: 048
     Dates: start: 2011
  16. CO-AMOXICLAV                       /01000301/ [Concomitant]
     Indication: Febrile neutropenia
     Dosage: 625 MILLIGRAM. 0.33 DAY
     Route: 048
     Dates: start: 20151122, end: 20151125
  17. MORPHINE [Concomitant]
     Active Substance: MORPHINE
     Dosage: 30 MILLIGRAM, BID MORPHINE MR
     Route: 048
     Dates: start: 201509
  18. CHLORPHENIRAMINE MALEATE [Concomitant]
     Active Substance: CHLORPHENIRAMINE MALEATE
     Dosage: 10 MILLIGRAM, QW (ANTIHISTAMINE DELIVERED WITH PACLITAXEL)
     Route: 058
     Dates: start: 20151111, end: 20160127
  19. LEVOFLOXACIN [Concomitant]
     Active Substance: LEVOFLOXACIN
     Indication: Febrile neutropenia
     Dosage: 500 MILLIGRAM, QD, EVERY 1 DAY (CUMULATIVE DOSE TO FIRST REACTION: 3000.0 MG)
     Route: 048
     Dates: start: 20151125, end: 20151128
  20. RANITIDINE [Concomitant]
     Active Substance: RANITIDINE
     Indication: Gastrooesophageal reflux disease
     Dosage: 50 MILLIGRAM, QW
     Route: 058
     Dates: start: 20151111
  21. OMEPRAZOLE [Concomitant]
     Active Substance: OMEPRAZOLE
     Indication: Dyspepsia
     Dosage: 20 MILLIGRAM, QD
     Route: 048
     Dates: start: 201509

REACTIONS (10)
  - Disease progression [Fatal]
  - Cellulitis [Recovered/Resolved]
  - Neuropathy peripheral [Recovered/Resolved]
  - Nasal discomfort [Recovered/Resolved]
  - Diarrhoea [Recovered/Resolved]
  - Fatigue [Recovered/Resolved]
  - Alopecia [Recovered/Resolved]
  - Mucosal inflammation [Recovered/Resolved]
  - Dyspepsia [Recovered/Resolved]
  - Nausea [Recovered/Resolved]

NARRATIVE: CASE EVENT DATE: 20151101
